FAERS Safety Report 5036864-0 (Version None)
Quarter: 2006Q2

REPORT INFORMATION
  Report Type: 
  Country: None (occurrence: None)
  Receive Date: 20060622
  Receipt Date: 20060606
  Transmission Date: 20061013
  Serious: Yes (Hospitalization, Disabling, Other)
  Sender: FDA-Public Use
  Company Number: DSA_27958_2006

PATIENT
  Age: 2 Day
  Sex: Male
  Weight: 3.925 kg

DRUGS (2)
  1. ATIVAN [Suspect]
     Indication: DRUG WITHDRAWAL SYNDROME
     Dosage: 0.5 MG/KG PRN PO
     Route: 048
     Dates: start: 20060326, end: 20060326
  2. EFFEXOR XR [Suspect]
     Dosage: 150 MG Q DAY TRAN-P
     Route: 064
     Dates: start: 20050601, end: 20060325

REACTIONS (26)
  - AGITATION NEONATAL [None]
  - ASPIRATION [None]
  - CAESAREAN SECTION [None]
  - DIARRHOEA NEONATAL [None]
  - DRUG EFFECT DECREASED [None]
  - DRUG EXPOSURE DURING PREGNANCY [None]
  - DRUG WITHDRAWAL SYNDROME NEONATAL [None]
  - FEEDING DISORDER NEONATAL [None]
  - FOETAL DISTRESS SYNDROME [None]
  - HYPERAESTHESIA [None]
  - HYPOREFLEXIA [None]
  - IRRITABILITY [None]
  - JOINT HYPEREXTENSION [None]
  - LARYNGEAL DISORDER [None]
  - MUSCLE RIGIDITY [None]
  - MUSCLE SPASMS [None]
  - NASAL FLARING [None]
  - NERVOUS SYSTEM DISORDER [None]
  - NO THERAPEUTIC RESPONSE [None]
  - PHOTOPHOBIA [None]
  - POOR SUCKING REFLEX [None]
  - REBOUND EFFECT [None]
  - RESTLESSNESS [None]
  - TACHYPNOEA [None]
  - TREMOR NEONATAL [None]
  - VOMITING PROJECTILE [None]
